FAERS Safety Report 7070361-6 (Version None)
Quarter: 2010Q4

REPORT INFORMATION
  Report Type: 
  Country: None (occurrence: None)
  Receive Date: 20101029
  Receipt Date: 20101018
  Transmission Date: 20110411
  Serious: Yes (Other)
  Sender: FDA-Public Use
  Company Number: US-BIOGENIDEC-2010BI002724

PATIENT
  Age: 36 Year
  Sex: Female

DRUGS (6)
  1. TYSABRI [Suspect]
     Indication: MULTIPLE SCLEROSIS
     Route: 042
     Dates: start: 20080319, end: 20090803
  2. TYSABRI [Suspect]
     Route: 042
     Dates: start: 20100909
  3. ADVIL [Concomitant]
  4. BENADRYL [Concomitant]
  5. ALAVERT [Concomitant]
  6. PRENATAL VITAMINS [Concomitant]

REACTIONS (2)
  - FOETAL MALPRESENTATION [None]
  - PREGNANCY [None]
